FAERS Safety Report 4926680-X (Version None)
Quarter: 2006Q1

REPORT INFORMATION
  Report Type: 
  Country: None (occurrence: None)
  Receive Date: 20060228
  Receipt Date: 20050524
  Transmission Date: 20060701
  Serious: Yes (Life-Threatening, Disabling, Other)
  Sender: FDA-Public Use
  Company Number: US-GLAXOSMITHKLINE-A0559932A

PATIENT
  Age: 37 Year
  Sex: Female

DRUGS (7)
  1. LAMICTAL [Suspect]
     Indication: BIPOLAR DISORDER
     Dosage: 25MG AT NIGHT
     Route: 048
     Dates: start: 20050517, end: 20050520
  2. ZOLOFT [Concomitant]
  3. ZYRTEC [Concomitant]
  4. PREVACID [Concomitant]
  5. BACLOFEN [Concomitant]
  6. VICODIN [Concomitant]
  7. SINGULAIR [Concomitant]

REACTIONS (5)
  - EOSINOPHIL COUNT INCREASED [None]
  - ORAL SOFT TISSUE DISORDER [None]
  - RASH [None]
  - RASH VESICULAR [None]
  - STOMATITIS [None]
